FAERS Safety Report 25206524 (Version 6)
Quarter: 2025Q4

REPORT INFORMATION
  Report Type: Spontaneous
  Country: US (occurrence: US)
  Receive Date: 20250417
  Receipt Date: 20251127
  Transmission Date: 20260117
  Serious: Yes (Other)
  Sender: BRISTOL-MYERS SQUIBB COMPANY
  Company Number: US-BRISTOL-MYERS SQUIBB COMPANY-2025-056906

PATIENT
  Age: 56 Year
  Sex: Male

DRUGS (1)
  1. REVLIMID [Suspect]
     Active Substance: LENALIDOMIDE
     Indication: Plasma cell myeloma
     Dosage: TAKE 1 CAPSULE BY MOUTH EVERY MORNING FOR 21 DAYS ON THEN 7 DAYS OFF
     Route: 048

REACTIONS (11)
  - Gait disturbance [Unknown]
  - Chest pain [Unknown]
  - Dysuria [Unknown]
  - Sexual dysfunction [Unknown]
  - Constipation [Unknown]
  - Amnesia [Unknown]
  - Palpitations [Unknown]
  - Musculoskeletal chest pain [Unknown]
  - Peripheral swelling [Unknown]
  - Abdominal distension [Unknown]
  - Oedema [Unknown]

NARRATIVE: CASE EVENT DATE: 20240101
